FAERS Safety Report 9041791 (Version 1)
Quarter: 2013Q1

REPORT INFORMATION
  Report Type: Report from Study
  Country: US (occurrence: US)
  Receive Date: 20130129
  Receipt Date: 20130129
  Transmission Date: 20140127
  Serious: No
  Sender: FDA-Public Use
  Company Number: US-ABBOTT-12P-163-0904192-00

PATIENT
  Age: 69 Year
  Sex: Female

DRUGS (6)
  1. HUMIRA 40 MG/0.8 ML PEN [Suspect]
     Indication: CROHN^S DISEASE
     Dosage: SET OF 4 INJECTIONS
     Dates: start: 201010, end: 201010
  2. HUMIRA 40 MG/0.8 ML PEN [Suspect]
  3. ARMOUR THYROID [Concomitant]
     Indication: PRODUCT USED FOR UNKNOWN INDICATION
  4. DEPLIN [Concomitant]
     Indication: VITAMIN B12 DEFICIENCY
  5. DEPLIN [Concomitant]
     Indication: THROMBOSIS PROPHYLAXIS
  6. PENTASA [Concomitant]
     Indication: CROHN^S DISEASE

REACTIONS (7)
  - Injection site reaction [Not Recovered/Not Resolved]
  - Injection site nodule [Not Recovered/Not Resolved]
  - Injection site erythema [Not Recovered/Not Resolved]
  - Injection site pruritus [Not Recovered/Not Resolved]
  - Injection site reaction [Not Recovered/Not Resolved]
  - Injection site urticaria [Recovered/Resolved]
  - Injection site haemorrhage [Unknown]
